FAERS Safety Report 15964323 (Version 1)
Quarter: 2019Q1

REPORT INFORMATION
  Report Type: Spontaneous
  Country: FR (occurrence: FR)
  Receive Date: 20190215
  Receipt Date: 20190215
  Transmission Date: 20190417
  Serious: Yes (Other)
  Sender: FDA-Public Use
  Company Number: FR-AUROBINDO-AUR-APL-2019-007811

PATIENT

DRUGS (6)
  1. HELICIDINE [Suspect]
     Active Substance: ESCARGOT
     Indication: INFECTION
     Dosage: UNK
     Route: 048
     Dates: start: 20171013, end: 20171019
  2. AMOXICILLIN. [Suspect]
     Active Substance: AMOXICILLIN
     Indication: INFECTION
     Dosage: UNK
     Route: 065
     Dates: start: 20171013, end: 20171019
  3. CELESTENE [BETAMETHASONE SODIUM PHOSPHATE] [Suspect]
     Active Substance: BETAMETHASONE SODIUM PHOSPHATE
     Indication: INFECTION
     Dosage: UNK
     Route: 065
     Dates: start: 20171013, end: 20171019
  4. AMOXICILLIN. [Suspect]
     Active Substance: AMOXICILLIN
     Dosage: UNK
     Route: 065
     Dates: start: 20171013
  5. AMOXICILLIN. [Suspect]
     Active Substance: AMOXICILLIN
     Dosage: UNK
     Route: 065
     Dates: start: 20170113
  6. BRONCHOKOD [Suspect]
     Active Substance: CARBOCYSTEINE
     Indication: INFECTION
     Dosage: UNK
     Route: 048
     Dates: start: 20171013, end: 20171019

REACTIONS (2)
  - Urticaria [Recovered/Resolved]
  - Angioedema [Recovered/Resolved]

NARRATIVE: CASE EVENT DATE: 20171019
